FAERS Safety Report 5494825-1 (Version None)
Quarter: 2007Q4

REPORT INFORMATION
  Report Type: 
  Country: None (occurrence: None)
  Receive Date: 20071024
  Receipt Date: 20071019
  Transmission Date: 20080405
  Serious: Yes (Death, Hospitalization)
  Sender: FDA-Public Use
  Company Number: US-SANOFI-SYNTHELABO-F03200700192

PATIENT
  Sex: Male
  Weight: 85.7 kg

DRUGS (2)
  1. OXALIPLATIN [Suspect]
     Indication: NEOPLASM MALIGNANT
     Route: 042
     Dates: start: 20071009, end: 20071009
  2. DOCETAXEL [Suspect]
     Indication: NEOPLASM MALIGNANT
     Route: 042
     Dates: start: 20071009, end: 20071009

REACTIONS (4)
  - DEHYDRATION [None]
  - HYPERKALAEMIA [None]
  - METABOLIC ACIDOSIS [None]
  - VOMITING [None]
